FAERS Safety Report 23862883 (Version 2)
Quarter: 2024Q4

REPORT INFORMATION
  Report Type: Spontaneous
  Country: CA (occurrence: CA)
  Receive Date: 20240516
  Receipt Date: 20241118
  Transmission Date: 20250114
  Serious: Yes (Other)
  Sender: PFIZER
  Company Number: CA-PFIZER INC-202400107961

PATIENT
  Age: 55 Year
  Sex: Female

DRUGS (9)
  1. RUXIENCE [Suspect]
     Active Substance: RITUXIMAB-PVVR
     Indication: Rheumatoid arthritis
     Dosage: 1000 MG EVERY 6 MONTHS, ONLY 1 DOSE
     Route: 042
     Dates: start: 20231109, end: 20231109
  2. RUXIENCE [Suspect]
     Active Substance: RITUXIMAB-PVVR
     Dosage: 1000 MG EVERY 6 MONTHS, ONLY 1 DOSE (1000MG, 6 MONTHS AND 5 DAYS)
     Route: 042
     Dates: start: 20240514
  3. RUXIENCE [Suspect]
     Active Substance: RITUXIMAB-PVVR
     Dosage: 1000 MG, SUBSEQUENT DAY 1 (EVERY 6 MONTH)
     Route: 042
     Dates: start: 20241113
  4. MIRENA [Concomitant]
     Active Substance: LEVONORGESTREL
     Dosage: UNK
  5. BISOPROLOL [Concomitant]
     Active Substance: BISOPROLOL
     Dosage: 2500 UG
     Route: 048
     Dates: start: 20240101
  6. FISH OIL [Concomitant]
     Active Substance: FISH OIL
     Dosage: 750 MG
     Route: 048
     Dates: start: 20240514
  7. PANTOPRAZOLE SODIUM [Concomitant]
     Active Substance: PANTOPRAZOLE SODIUM
     Dosage: 40 MG
     Route: 048
  8. MOMETASONE [Concomitant]
     Active Substance: MOMETASONE
     Dosage: 1 DF
     Route: 045
  9. CYCLOSPORINE [Concomitant]
     Active Substance: CYCLOSPORINE
     Dosage: 1 DF
     Route: 047

REACTIONS (4)
  - Supraventricular tachycardia [Recovered/Resolved]
  - Cough [Unknown]
  - Incorrect product administration duration [Unknown]
  - Inappropriate schedule of product administration [Unknown]

NARRATIVE: CASE EVENT DATE: 20240101
